FAERS Safety Report 9788286 (Version 1)
Quarter: 2013Q4

REPORT INFORMATION
  Report Type: Report from Study
  Country: IT (occurrence: IT)
  Receive Date: 20131230
  Receipt Date: 20131230
  Transmission Date: 20140711
  Serious: Yes (Hospitalization)
  Sender: FDA-Public Use
  Company Number: PHHY2013IT149214

PATIENT
  Age: 58 Year
  Sex: Male

DRUGS (11)
  1. CERTICAN [Suspect]
     Indication: PROPHYLAXIS AGAINST TRANSPLANT REJECTION
     Dosage: 1 MG (05 MG IN THE MORNING AND 0.5MG IN THE EVENING
     Route: 048
     Dates: start: 20130709
  2. CERTICAN [Suspect]
     Dosage: DOSE INCREASED
     Dates: end: 20130823
  3. SANDIMMUN NEORAL [Concomitant]
     Indication: PROPHYLAXIS AGAINST TRANSPLANT REJECTION
     Dosage: 25 MG IN THE MORINING AND 25MG IN THE EVENING
     Dates: start: 20130709, end: 20130827
  4. DELTACORTENE [Concomitant]
     Indication: PROPHYLAXIS AGAINST TRANSPLANT REJECTION
     Dosage: 10 MG IN THE MORNING
     Dates: start: 20110502
  5. LASIX [Concomitant]
     Dosage: 25 MG, 3 TABLET IN MORNING AND 3 TABLET IN AFTERNOON
  6. INEGY [Concomitant]
     Dosage: 10/10 IN THE EVENING
  7. ZYLORIC [Concomitant]
     Dosage: 300 MG
  8. CARVEDILOL [Concomitant]
     Dosage: 6.25 MG
  9. KARVEA [Concomitant]
     Dosage: 75 MG IN THE MORNING
  10. METOCAL VIT D3 [Concomitant]
     Dosage: 1 TABLET
  11. COUMADIN//WARFARIN SODIUM [Concomitant]
     Dosage: UNK

REACTIONS (12)
  - Cardiac failure [Recovered/Resolved]
  - Left ventricular end-diastolic pressure increased [Recovered/Resolved]
  - Blood pressure decreased [Recovered/Resolved]
  - Dyspnoea [Recovered/Resolved]
  - Bundle branch block right [Recovered/Resolved]
  - Ventricular hypokinesia [Recovered/Resolved]
  - Sinus tachycardia [Recovered/Resolved]
  - Cardiac output decreased [Recovered/Resolved]
  - QRS axis abnormal [Recovered/Resolved]
  - Heart transplant rejection [Recovered/Resolved]
  - Haemoglobin decreased [Recovered/Resolved]
  - Immunosuppressant drug level decreased [Recovered/Resolved]
